FAERS Safety Report 4529367-0 (Version None)
Quarter: 2005Q1

REPORT INFORMATION
  Report Type: 
  Country: None (occurrence: None)
  Receive Date: 20041202
  Receipt Date: 20040802
  Transmission Date: 20050727
  Serious: No
  Sender: FDA-Public Use
  Company Number: 200419711BWH

PATIENT
  Sex: Male

DRUGS (2)
  1. LEVITRA [Suspect]
     Dosage: 10 MG, PRN, ORAL
     Route: 048
  2. VIAGRA [Concomitant]

REACTIONS (1)
  - UNEVALUABLE EVENT [None]
